FAERS Safety Report 7081995-7 (Version None)
Quarter: 2010Q4

REPORT INFORMATION
  Report Type: 
  Country: None (occurrence: None)
  Receive Date: 20101103
  Receipt Date: 20101027
  Transmission Date: 20110411
  Serious: Yes (Other)
  Sender: FDA-Public Use
  Company Number: GB-PFIZER INC-2010137813

PATIENT
  Age: 41 Year
  Sex: Female

DRUGS (1)
  1. SYNAREL [Suspect]
     Dosage: UNK
     Route: 050
     Dates: start: 20100101, end: 20100101

REACTIONS (2)
  - ABORTION SPONTANEOUS [None]
  - MEDICATION ERROR [None]
